FAERS Safety Report 8267151-5 (Version None)
Quarter: 2012Q2

REPORT INFORMATION
  Report Type: 
  Country: None (occurrence: None)
  Receive Date: 20120409
  Receipt Date: 20120329
  Transmission Date: 20120825
  Serious: Yes (Hospitalization)
  Sender: FDA-Public Use
  Company Number: RO-JNJFOC-20120400906

PATIENT
  Sex: Male
  Weight: 88 kg

DRUGS (6)
  1. METHOTREXATE [Suspect]
     Route: 058
     Dates: start: 20110201, end: 20111201
  2. REMICADE [Suspect]
     Dosage: 4 BOTTLES 100 MG
     Route: 042
     Dates: start: 20110701, end: 20111201
  3. METHOTREXATE [Suspect]
     Indication: PSORIATIC ARTHROPATHY
     Route: 058
     Dates: start: 20110201, end: 20111201
  4. ORAL HYPOGLYCEMIC NOS [Concomitant]
     Indication: DIABETES MELLITUS
     Route: 065
  5. KETOPROFEN [Concomitant]
     Route: 065
  6. REMICADE [Suspect]
     Indication: PSORIATIC ARTHROPATHY
     Dosage: 4 BOTTLES 100 MG
     Route: 042
     Dates: start: 20110701, end: 20111201

REACTIONS (3)
  - PERICARDITIS [None]
  - PULMONARY TUBERCULOSIS [None]
  - TUBERCULOUS PLEURISY [None]
